FAERS Safety Report 17554677 (Version 2)
Quarter: 2020Q2

REPORT INFORMATION
  Report Type: Spontaneous
  Country: PL (occurrence: PL)
  Receive Date: 20200318
  Receipt Date: 20200407
  Transmission Date: 20200713
  Serious: Yes (Disabling, Other)
  Sender: FDA-Public Use
  Company Number: PL-TEVA-2020-PL-1205465

PATIENT
  Age: 73 Year
  Sex: Female

DRUGS (2)
  1. LEVOXA [Suspect]
     Active Substance: LEVOFLOXACIN
     Indication: EAR INFECTION
     Dosage: 500 MILLIGRAM DAILY; 4 DOSES WERE ADMINISTERED
     Route: 048
     Dates: start: 20200301, end: 20200304
  2. LEVOXA [Suspect]
     Active Substance: LEVOFLOXACIN
     Indication: PHARYNGITIS

REACTIONS (13)
  - Unevaluable event [Recovered/Resolved]
  - Visual impairment [Recovered/Resolved]
  - Arthralgia [Recovering/Resolving]
  - Joint swelling [Not Recovered/Not Resolved]
  - Myalgia [Recovering/Resolving]
  - Haematemesis [Recovered/Resolved]
  - Palpitations [Recovered/Resolved]
  - Dyskinesia [Recovering/Resolving]
  - Malaise [Recovered/Resolved]
  - Loss of consciousness [Recovered/Resolved]
  - Nausea [Recovered/Resolved]
  - Asthenia [Recovered/Resolved]
  - Erythema [Not Recovered/Not Resolved]

NARRATIVE: CASE EVENT DATE: 20200302
